FAERS Safety Report 6254896-1 (Version None)
Quarter: 2009Q3

REPORT INFORMATION
  Report Type: 
  Country: None (occurrence: None)
  Receive Date: 20090702
  Receipt Date: 20090624
  Transmission Date: 20100115
  Serious: Yes (Hospitalization, Other)
  Sender: FDA-Public Use
  Company Number: US-AVENTIS-200911632US

PATIENT
  Sex: Female
  Weight: 100 kg

DRUGS (36)
  1. LOVENOX [Suspect]
     Dosage: DOSE: UNK
     Dates: start: 20081001
  2. LOVENOX [Suspect]
     Dates: start: 20081001, end: 20081001
  3. LOVENOX [Suspect]
     Indication: THROMBOSIS PROPHYLAXIS
     Dosage: DOSE: UNK
     Dates: start: 20081001
  4. LOVENOX [Suspect]
     Dates: start: 20081001, end: 20081001
  5. LOVENOX [Suspect]
     Dosage: DOSE: UNK
     Dates: start: 20081001
  6. LOVENOX [Suspect]
     Dates: start: 20081001, end: 20081001
  7. BENICAR [Concomitant]
     Indication: HYPERTENSION
     Dosage: DOSE: UNK
  8. ALBUTEROL [Concomitant]
     Dosage: DOSE: UNK
     Route: 055
  9. SINGULAIR [Concomitant]
     Indication: ASTHMA
     Dosage: DOSE: UNK
  10. CRESTOR [Concomitant]
     Dosage: DOSE: UNK
  11. CARDIZEM LA [Concomitant]
     Indication: HYPERTENSION
     Dosage: DOSE: UNK
  12. CATAPRES                           /00171101/ [Concomitant]
     Dosage: DOSE: UNK
  13. APIDRA [Concomitant]
     Dosage: DOSE: UNK, VIA INSULIN PUMP
     Route: 058
  14. DRUG USED IN DIABETES [Concomitant]
     Dosage: DOSE: UNK
     Route: 051
  15. NIACIN [Concomitant]
     Dosage: DOSE: UNK
  16. VIT D [Concomitant]
     Indication: VITAMIN D DEFICIENCY
     Dosage: DOSE: UNK
  17. MULTI-VITAMINS [Concomitant]
     Dosage: DOSE: UNK
  18. VICODIN [Concomitant]
     Dosage: DOSE: UNK
  19. ANAESTHETICS [Concomitant]
     Dosage: DOSE: UNK
     Route: 024
  20. KETAMINE HCL [Concomitant]
     Dosage: DOSE: 10MG/ML, 20 ML
     Dates: start: 20081021
  21. MEPERIDINE HCL [Concomitant]
     Dosage: DOSE: 50 MG/ML 1 ML
     Dates: start: 20081021
  22. MORPHINE [Concomitant]
     Dosage: DOSE: 2MG/ML, 1ML
     Route: 051
     Dates: start: 20081021
  23. BACITRACIN [Concomitant]
     Dosage: DOSE: 50 MU VIAL
     Dates: start: 20081021
  24. PHENYLEPHRINE [Concomitant]
     Dosage: DOSE: 10/MG/ML 1M
     Dates: start: 20081021
  25. NALBUPHINE [Concomitant]
     Dosage: DOSE: 10 MG/ML 1 ML
     Dates: start: 20081021
  26. CEFAZOLIN [Concomitant]
     Dosage: DOSE: 1 GM VIAL
     Dates: start: 20081021
  27. HYDROMORPHONE [Concomitant]
     Dosage: DOSE: 2MG/ML AMP
     Dates: start: 20081021
  28. DEXTROSE [Concomitant]
     Dosage: DOSE: 10% 5 ML AMP
     Dates: start: 20081021
  29. DEXTROSE [Concomitant]
     Dates: start: 20081027
  30. HYDROXYZINE [Concomitant]
     Dosage: DOSE: 50/MG/ML 1 ML
     Dates: start: 20081021
  31. POLYMIXIN B [Concomitant]
     Dosage: DOSE: 500 MU/ VIAL 1
     Dates: start: 20081021
  32. KETOROLAC TROMETHAMINE [Concomitant]
     Dosage: DOSE: 30 MG/ML 1ML
     Dates: start: 20081021
  33. PROPOFOL [Concomitant]
     Dosage: DOSE: 10MG/ML 20 ML
     Dates: start: 20081021
  34. MIDAZOLAM HCL [Concomitant]
     Dosage: DOSE: 1MG/ML 2 ML
     Dates: start: 20081021
  35. PONTOCAINE [Concomitant]
     Dosage: DOSE: 20 MG/2ML
     Dates: start: 20081021
  36. LIDOCAINE [Concomitant]
     Dosage: DOSE: 1%
     Dates: start: 20081021

REACTIONS (11)
  - ATELECTASIS [None]
  - BLOOD GLUCOSE INCREASED [None]
  - CHEST PAIN [None]
  - COLLAPSE OF LUNG [None]
  - CYSTITIS [None]
  - DRUG INEFFECTIVE [None]
  - DYSPNOEA [None]
  - MUSCLE SPASMS [None]
  - PNEUMONIA [None]
  - PULMONARY EMBOLISM [None]
  - PYREXIA [None]
